FAERS Safety Report 17709509 (Version 2)
Quarter: 2023Q4

REPORT INFORMATION
  Report Type: Spontaneous
  Country: US (occurrence: US)
  Receive Date: 20200427
  Receipt Date: 20231220
  Transmission Date: 20240110
  Serious: Yes (Life-Threatening, Hospitalization, Other)
  Sender: FDA-Public Use
  Company Number: US-AUROBINDO-AUR-APL-2020-021006

PATIENT
  Age: 73 Year
  Sex: Male

DRUGS (15)
  1. INDOMETHACIN [Suspect]
     Active Substance: INDOMETHACIN
     Indication: Arthralgia
     Dosage: UNK
     Route: 065
  2. DICLOFENAC SODIUM [Suspect]
     Active Substance: DICLOFENAC\DICLOFENAC SODIUM
     Indication: Arthralgia
     Dosage: UNK
     Route: 065
  3. PIROXICAM [Suspect]
     Active Substance: PIROXICAM
     Indication: Arthralgia
     Dosage: UNK
     Route: 065
  4. OCTREOTIDE [Concomitant]
     Active Substance: OCTREOTIDE
     Indication: Product used for unknown indication
     Dosage: UNK
     Route: 065
  5. PANTOPRAZOLE [Concomitant]
     Active Substance: PANTOPRAZOLE
     Indication: Product used for unknown indication
     Dosage: UNK
     Route: 065
  6. CEFTRIAXONE [Concomitant]
     Active Substance: CEFTRIAXONE\CEFTRIAXONE SODIUM
     Indication: Infection
     Dosage: UNK
     Route: 065
  7. NOREPINEPHRINE [Concomitant]
     Active Substance: NOREPINEPHRINE
     Indication: Blood pressure measurement
     Dosage: UNK
     Route: 065
  8. TRANEXAMIC ACID [Concomitant]
     Active Substance: TRANEXAMIC ACID
     Indication: Thrombosis
     Dosage: UNK
     Route: 065
  9. BOLDINE [Concomitant]
     Active Substance: BOLDINE
     Indication: Product used for unknown indication
     Dosage: UNK
     Route: 065
  10. CIMETIDINE [Concomitant]
     Active Substance: CIMETIDINE
     Indication: Product used for unknown indication
     Dosage: UNK
     Route: 065
  11. ATROPINE [Concomitant]
     Active Substance: ATROPINE\ATROPINE SULFATE
     Indication: Product used for unknown indication
     Dosage: UNK
     Route: 065
  12. CHLORTETRACYCLINE [Concomitant]
     Active Substance: CHLORTETRACYCLINE
     Indication: Product used for unknown indication
     Dosage: UNK
     Route: 065
  13. TETRACYCLINE [Concomitant]
     Active Substance: TETRACYCLINE
     Indication: Product used for unknown indication
     Dosage: UNK
     Route: 065
  14. LEVAMISOLE [Concomitant]
     Active Substance: LEVAMISOLE
     Indication: Product used for unknown indication
     Dosage: UNK
     Route: 065
  15. BERBERINE [Concomitant]
     Active Substance: BERBERINE
     Indication: Product used for unknown indication
     Dosage: UNK
     Route: 065

REACTIONS (18)
  - Gastrointestinal haemorrhage [Recovered/Resolved]
  - Arterial haemorrhage [Recovered/Resolved]
  - Renal ischaemia [Recovering/Resolving]
  - Coagulopathy [Recovered/Resolved]
  - Adulterated product [Unknown]
  - Duodenal ulcer [Unknown]
  - Melaena [Unknown]
  - Haematochezia [Unknown]
  - Syncope [Unknown]
  - Abdominal compartment syndrome [Unknown]
  - Duodenal perforation [Unknown]
  - Cold sweat [Unknown]
  - Conjunctival pallor [Unknown]
  - Biliary catheter insertion [Unknown]
  - Cholecystectomy [Unknown]
  - Duodenostomy [Unknown]
  - Jejunostomy [Unknown]
  - Haematemesis [Unknown]
